FAERS Safety Report 6820977-4 (Version None)
Quarter: 2010Q3

REPORT INFORMATION
  Report Type: 
  Country: None (occurrence: None)
  Receive Date: 20100707
  Receipt Date: 20070928
  Transmission Date: 20110219
  Serious: No
  Sender: FDA-Public Use
  Company Number: US-PFIZER INC-2007057511

PATIENT
  Sex: Female
  Weight: 56.8 kg

DRUGS (4)
  1. ZOLOFT [Suspect]
     Indication: ANXIETY
     Dates: start: 20020101
  2. SERTRALINE HCL [Suspect]
     Indication: ANXIETY
     Dates: start: 20060901, end: 20070501
  3. TRAZODONE HYDROCHLORIDE [Concomitant]
  4. WELLBUTRIN XL [Concomitant]

REACTIONS (2)
  - DRUG INEFFECTIVE [None]
  - IRRITABILITY [None]
